FAERS Safety Report 24856940 (Version 1)
Quarter: 2025Q1

REPORT INFORMATION
  Report Type: Spontaneous
  Country: RU (occurrence: RU)
  Receive Date: 20250117
  Receipt Date: 20250117
  Transmission Date: 20250408
  Serious: Yes (Hospitalization, Other)
  Sender: VERTEX
  Company Number: RU-VERTEX PHARMACEUTICALS-2025-000597

PATIENT
  Age: 17 Year
  Sex: Male
  Weight: 21 kg

DRUGS (2)
  1. TRIKAFTA [Suspect]
     Active Substance: ELEXACAFTOR\IVACAFTOR\TEZACAFTOR
     Indication: Cystic fibrosis
     Route: 048
     Dates: start: 20240423
  2. TRIKAFTA [Suspect]
     Active Substance: ELEXACAFTOR\IVACAFTOR\TEZACAFTOR
     Route: 048

REACTIONS (7)
  - Seizure [Unknown]
  - Mood altered [Unknown]
  - Insomnia [Unknown]
  - Nervousness [Unknown]
  - Sensitivity to weather change [Unknown]
  - Headache [Unknown]
  - Somnolence [Unknown]

NARRATIVE: CASE EVENT DATE: 20240510
